FAERS Safety Report 7918204 (Version 2)
Quarter: 2012Q4

REPORT INFORMATION
  Report Type: Spontaneous
  Country: US (occurrence: None)
  Receive Date: 20110407
  Receipt Date: 20120912
  Transmission Date: 20130627
  Serious: Yes (Other)
  Sender: FDA-Public Use
  Company Number: 2011MA002954

PATIENT
  Sex: Female
  Weight: 63.5 kg

DRUGS (7)
  1. METOCLOPRAMIDE [Suspect]
     Indication: ACID REFLUX
     Dates: start: 200101, end: 200106
  2. METOCLOPRAMIDE [Suspect]
     Indication: NAUSEA
     Dates: start: 200101, end: 200106
  3. METOCLOPRAMIDE [Suspect]
     Indication: VOMITING
     Dates: start: 200101, end: 200106
  4. ACIPHEX [Concomitant]
  5. DITROPAN [Concomitant]
  6. ENSURE [Concomitant]
  7. PREVACID [Concomitant]

REACTIONS (10)
  - Tardive dyskinesia [None]
  - Dystonia [None]
  - Akathisia [None]
  - Extrapyramidal disorder [None]
  - Tremor [None]
  - Injury [None]
  - Dyskinesia [None]
  - Emotional disorder [None]
  - Economic problem [None]
  - Family stress [None]
